FAERS Safety Report 6021706-7 (Version None)
Quarter: 2008Q4

REPORT INFORMATION
  Report Type: 
  Country: None (occurrence: None)
  Receive Date: 20081222
  Receipt Date: 20081116
  Transmission Date: 20090506
  Serious: No
  Sender: FDA-Public Use
  Company Number: ALL 1-2008-02923

PATIENT
  Age: 8 Year
  Sex: Male
  Weight: 22.7 kg

DRUGS (3)
  1. VYVANSE [Suspect]
     Indication: ATTENTION DEFICIT/HYPERACTIVITY DISORDER
     Dosage: 20 MG, 1X/DAY:QD, ORAL
     Route: 048
     Dates: start: 20080801, end: 20081001
  2. MULTIVITAMINS W/FLUORIDE (SODIUM FLUORIDE, VITAMINS NOS) [Concomitant]
  3. FLOVENT [Concomitant]

REACTIONS (1)
  - HEADACHE [None]
